FAERS Safety Report 9032744 (Version 2)
Quarter: 2013Q1

REPORT INFORMATION
  Report Type: Spontaneous
  Country: CA (occurrence: CA)
  Receive Date: 20130128
  Receipt Date: 20130227
  Transmission Date: 20140127
  Serious: Yes (Hospitalization)
  Sender: FDA-Public Use
  Company Number: CA-BIOGENIDEC-2013BI006722

PATIENT
  Age: 61 Year
  Sex: Female

DRUGS (1)
  1. AVONEX [Suspect]
     Indication: MULTIPLE SCLEROSIS
     Route: 030
     Dates: start: 20000801

REACTIONS (4)
  - Spinal deformity [Unknown]
  - Postoperative wound infection [Recovered/Resolved]
  - Osteoarthritis [Recovered/Resolved]
  - Multiple sclerosis relapse [Recovered/Resolved]
